FAERS Safety Report 5857904-2 (Version None)
Quarter: 2008Q3

REPORT INFORMATION
  Report Type: 
  Country: None (occurrence: None)
  Receive Date: 20080825
  Receipt Date: 20080825
  Transmission Date: 20090109
  Serious: Yes (Life-Threatening, Hospitalization)
  Sender: FDA-Public Use
  Company Number: None

PATIENT
  Age: 46 Year
  Sex: Female
  Weight: 63.5036 kg

DRUGS (1)
  1. GADOLINIUM DYE FOR MRI CONTRAST [Suspect]

REACTIONS (8)
  - CARDIO-RESPIRATORY ARREST [None]
  - FLUSHING [None]
  - OBSTRUCTIVE AIRWAYS DISORDER [None]
  - PARAESTHESIA ORAL [None]
  - RESPIRATORY DISORDER [None]
  - SNEEZING [None]
  - SWELLING FACE [None]
  - TACHYCARDIA [None]
